FAERS Safety Report 5972019-0 (Version None)
Quarter: 2008Q4

REPORT INFORMATION
  Report Type: 
  Country: None (occurrence: None)
  Receive Date: 20081125
  Receipt Date: 20081107
  Transmission Date: 20090506
  Serious: Yes (Hospitalization)
  Sender: FDA-Public Use
  Company Number: 2008002761

PATIENT
  Age: 43 Year
  Sex: Male
  Weight: 67.7 kg

DRUGS (6)
  1. ERLOTINIB (ERLOTINIB) (TABLET) (ERLOTINIB) [Suspect]
     Indication: NON-SMALL CELL LUNG CANCER
     Dosage: (150 MG, QD), ORAL
     Route: 048
     Dates: start: 20060926
  2. BEVACIZUMAB (INJECTION FOR INFUSION) [Suspect]
     Indication: NON-SMALL CELL LUNG CANCER
     Dosage: 1155 MG, Q3W), INTRAVENOUS
     Route: 042
     Dates: start: 20060929
  3. BEVACIZUMAB (INJECTION FOR INFUSION) [Suspect]
  4. XANAX [Concomitant]
  5. LEXAPRO [Concomitant]
  6. COMPAZINE [Concomitant]

REACTIONS (4)
  - BLOOD CHLORIDE INCREASED [None]
  - BLOOD GLUCOSE INCREASED [None]
  - GASTROINTESTINAL HAEMORRHAGE [None]
  - HYPOKALAEMIA [None]
